FAERS Safety Report 9088599 (Version 1)
Quarter: 2013Q1

REPORT INFORMATION
  Report Type: Report from Study
  Country: US (occurrence: US)
  Receive Date: 20130131
  Receipt Date: 20130131
  Transmission Date: 20140127
  Serious: No
  Sender: FDA-Public Use
  Company Number: US-ABBOTT-12P-163-0991179-00

PATIENT
  Age: 74 Year
  Sex: Male

DRUGS (18)
  1. HUMIRA [Suspect]
     Indication: CROHN^S DISEASE
     Dosage: 4 PENS
     Dates: start: 20120925
  2. GLIPIZIDE [Concomitant]
     Indication: PROSTATIC DISORDER
  3. LYRICA [Concomitant]
     Indication: PAIN
  4. COZAAR [Concomitant]
     Indication: RENAL DISORDER
  5. NEXIUM [Concomitant]
     Indication: PRODUCT USED FOR UNKNOWN INDICATION
  6. CHOLESTYRAMINE [Concomitant]
     Indication: CROHN^S DISEASE
     Dosage: 3 PACKS A DAY
  7. VESICARE [Concomitant]
     Indication: BLADDER DISORDER
  8. FLOMAX [Concomitant]
     Indication: PROSTATIC DISORDER
  9. LANTUS SOLO STAR INSULIN [Concomitant]
     Indication: PRODUCT USED FOR UNKNOWN INDICATION
     Dosage: 18-20 UNITS ONCE A DAY
  10. ALLOPURINOL [Concomitant]
     Indication: GOUT
  11. VITAMIN B6 [Concomitant]
     Indication: PRODUCT USED FOR UNKNOWN INDICATION
  12. GINGER [Concomitant]
     Indication: PRODUCT USED FOR UNKNOWN INDICATION
  13. GINKO [Concomitant]
     Indication: PRODUCT USED FOR UNKNOWN INDICATION
  14. MULTIVITAMIN [Concomitant]
     Indication: PRODUCT USED FOR UNKNOWN INDICATION
  15. FOLIC ACID [Concomitant]
     Indication: PRODUCT USED FOR UNKNOWN INDICATION
  16. VITAMIN B12 [Concomitant]
     Indication: PRODUCT USED FOR UNKNOWN INDICATION
  17. FLAXSEED [Concomitant]
     Indication: PRODUCT USED FOR UNKNOWN INDICATION
  18. FISH OIL [Concomitant]
     Indication: PRODUCT USED FOR UNKNOWN INDICATION

REACTIONS (1)
  - Injection site pain [Recovered/Resolved]
